FAERS Safety Report 5499994-5 (Version None)
Quarter: 2007Q4

REPORT INFORMATION
  Report Type: 
  Country: None (occurrence: None)
  Receive Date: 20071026
  Receipt Date: 20071012
  Transmission Date: 20080405
  Serious: Yes (Death, Hospitalization)
  Sender: FDA-Public Use
  Company Number: FR-GENENTECH-250205

PATIENT
  Sex: Male

DRUGS (4)
  1. AVASTIN [Suspect]
     Indication: COLORECTAL CANCER
     Dosage: 275 MG, UNK
     Route: 042
     Dates: start: 20060710, end: 20060710
  2. FOLINIC ACID [Suspect]
     Indication: DRUG USE FOR UNKNOWN INDICATION
     Route: 042
     Dates: start: 20060710, end: 20060710
  3. FLUOROURACIL [Suspect]
     Indication: COLORECTAL CANCER
     Dosage: 4600 MG, UNK
     Route: 042
     Dates: start: 20060710, end: 20060710
  4. CAMPTOSAR [Suspect]
     Indication: COLORECTAL CANCER
     Dosage: 300 MG, UNK
     Route: 042
     Dates: start: 20060710, end: 20060710

REACTIONS (2)
  - PANCYTOPENIA [None]
  - SEPTIC SHOCK [None]
